FAERS Safety Report 7979827-5 (Version None)
Quarter: 2011Q4

REPORT INFORMATION
  Report Type: 
  Country: None (occurrence: None)
  Receive Date: 20111214
  Receipt Date: 20111212
  Transmission Date: 20120403
  Serious: Yes (Death, Other)
  Sender: FDA-Public Use
  Company Number: US-ELI_LILLY_AND_COMPANY-US201111002198

PATIENT
  Sex: Male

DRUGS (2)
  1. ALIMTA [Suspect]
     Indication: LUNG CARCINOMA CELL TYPE UNSPECIFIED STAGE 0
     Dosage: UNK UNK, SINGLE
     Dates: start: 20110916, end: 20110916
  2. VITAMIN B-12 [Concomitant]

REACTIONS (2)
  - NEOPLASM MALIGNANT [None]
  - HOSPICE CARE [None]
